FAERS Safety Report 5536951-4 (Version None)
Quarter: 2007Q4

REPORT INFORMATION
  Report Type: 
  Country: None (occurrence: None)
  Receive Date: 20071207
  Receipt Date: 20071128
  Transmission Date: 20080405
  Serious: Yes (Other)
  Sender: FDA-Public Use
  Company Number: CA-JNJFOC-20071110484

PATIENT
  Age: 31 Year
  Sex: Female

DRUGS (14)
  1. REMICADE [Suspect]
     Indication: POLYARTHRITIS
     Dosage: TREATED FOR 1 1/2 YEARS
     Route: 042
  2. METHOTREXATE [Concomitant]
  3. PREDNISONE TAB [Concomitant]
  4. ACTIMEL [Concomitant]
  5. COTIZYME [Concomitant]
  6. HUMULOGUE [Concomitant]
  7. AMATRIPTALINE [Concomitant]
  8. FOLIC ACID [Concomitant]
  9. ATENOLOL [Concomitant]
  10. VITAMIN B-12 [Concomitant]
  11. TEMAZEPAM [Concomitant]
  12. OXYCONTIN [Concomitant]
  13. ENDOCEPT [Concomitant]
  14. GLUCAGON [Concomitant]

REACTIONS (5)
  - INFUSION RELATED REACTION [None]
  - LOSS OF CONSCIOUSNESS [None]
  - MALAISE [None]
  - NAUSEA [None]
  - RASH [None]
